FAERS Safety Report 25663011 (Version 3)
Quarter: 2025Q3

REPORT INFORMATION
  Report Type: Spontaneous
  Country: US (occurrence: US)
  Receive Date: 20250811
  Receipt Date: 20250819
  Transmission Date: 20251021
  Serious: No
  Sender: KARYOPHARM THERAPEUTICS
  Company Number: US-KARYOPHARM-2025KPT100598

PATIENT

DRUGS (7)
  1. SELINEXOR [Suspect]
     Active Substance: SELINEXOR
     Indication: Plasma cell myeloma recurrent
     Route: 048
     Dates: start: 20250731, end: 202508
  2. DEXAMETHASONE [Concomitant]
     Active Substance: DEXAMETHASONE
  3. FAMCICLOVIR [Concomitant]
     Active Substance: FAMCICLOVIR
  4. LIDODERM [Concomitant]
     Active Substance: LIDOCAINE
  5. NYSTATIN [Concomitant]
     Active Substance: NYSTATIN
  6. SEROTONIN [Concomitant]
     Active Substance: SEROTONIN
  7. PROCHLORPERAZINE [Concomitant]
     Active Substance: PROCHLORPERAZINE

REACTIONS (7)
  - Malaise [Unknown]
  - Fatigue [Unknown]
  - Blood sodium decreased [Unknown]
  - Dizziness [Unknown]
  - Nausea [Unknown]
  - Drug intolerance [Unknown]
  - Product dose omission issue [Unknown]

NARRATIVE: CASE EVENT DATE: 20250101
